FAERS Safety Report 24624977 (Version 5)
Quarter: 2025Q3

REPORT INFORMATION
  Report Type: Spontaneous
  Country: US (occurrence: US)
  Receive Date: 20241115
  Receipt Date: 20250816
  Transmission Date: 20251021
  Serious: Yes (Other)
  Sender: ALEXION PHARMACEUTICALS
  Company Number: US-AstraZeneca-CH-00725960A

PATIENT
  Age: 67 Year
  Sex: Female
  Weight: 45.351 kg

DRUGS (2)
  1. TEZSPIRE [Suspect]
     Active Substance: TEZEPELUMAB-EKKO
     Indication: Product used for unknown indication
  2. TEZSPIRE [Suspect]
     Active Substance: TEZEPELUMAB-EKKO

REACTIONS (3)
  - Blood immunoglobulin M increased [Unknown]
  - Cryoglobulinaemia [Unknown]
  - Sjogren^s syndrome [Unknown]

NARRATIVE: CASE EVENT DATE: 20240930
